FAERS Safety Report 8279153-3 (Version None)
Quarter: 2012Q2

REPORT INFORMATION
  Report Type: 
  Country: None (occurrence: None)
  Receive Date: 20120412
  Receipt Date: 20110506
  Transmission Date: 20120825
  Serious: No
  Sender: FDA-Public Use
  Company Number: US-ASTRAZENECA-2011SE27398

PATIENT
  Age: 70 Year
  Sex: Female
  Weight: 59 kg

DRUGS (5)
  1. LIBRIUM [Concomitant]
  2. ESTRADIOL [Concomitant]
  3. DOXAZOSIN MESYLATE [Concomitant]
  4. NEXIUM [Suspect]
     Indication: GASTROOESOPHAGEAL REFLUX DISEASE
     Route: 048
     Dates: start: 20110504
  5. LISINOPRIL [Concomitant]

REACTIONS (2)
  - VAGINAL INFECTION [None]
  - FEELING ABNORMAL [None]
